FAERS Safety Report 23760384 (Version 9)
Quarter: 2025Q2

REPORT INFORMATION
  Report Type: Report from Study
  Country: US (occurrence: US)
  Receive Date: 20240419
  Receipt Date: 20250630
  Transmission Date: 20250716
  Serious: Yes (Hospitalization, Other)
  Sender: BOEHRINGER INGELHEIM
  Company Number: US-BoehringerIngelheim-2023-BI-258778

PATIENT
  Age: 79 Year
  Sex: Male

DRUGS (21)
  1. OFEV [Suspect]
     Active Substance: NINTEDANIB
     Indication: Idiopathic pulmonary fibrosis
     Dates: start: 202410
  2. OFEV [Suspect]
     Active Substance: NINTEDANIB
     Dates: start: 20230807
  3. OFEV [Suspect]
     Active Substance: NINTEDANIB
     Dates: start: 20231215, end: 202312
  4. OFEV [Suspect]
     Active Substance: NINTEDANIB
     Dates: start: 20240620
  5. OFEV [Suspect]
     Active Substance: NINTEDANIB
     Dosage: OFEV MORNING DOSE 150MG, EVENING DOSE 100MG
  6. OFEV [Suspect]
     Active Substance: NINTEDANIB
     Dates: start: 20241012
  7. Chlorthalidone (HYGROTON) [Concomitant]
     Indication: Product used for unknown indication
  8. EDARBI [Concomitant]
     Active Substance: AZILSARTAN KAMEDOXOMIL
     Indication: Product used for unknown indication
  9. THYROXINE [Concomitant]
     Active Substance: LEVOTHYROXINE
     Indication: Product used for unknown indication
  10. LIPITOR [Concomitant]
     Active Substance: ATORVASTATIN CALCIUM
     Indication: Product used for unknown indication
  11. TENORMIN [Concomitant]
     Active Substance: ATENOLOL
     Indication: Product used for unknown indication
  12. PLAVIX [Concomitant]
     Active Substance: CLOPIDOGREL BISULFATE
     Indication: Product used for unknown indication
  13. ALBUTEROL [Concomitant]
     Active Substance: ALBUTEROL
     Indication: Wheezing
  14. ALBUTEROL [Concomitant]
     Active Substance: ALBUTEROL
     Indication: Dyspnoea
  15. azilsartan medoxomiL (EDARBI) [Concomitant]
     Indication: Product used for unknown indication
  16. PEPCID [Concomitant]
     Active Substance: FAMOTIDINE
     Indication: Product used for unknown indication
  17. ipratropium (ATROVENT) [Concomitant]
     Indication: Product used for unknown indication
  18. SYNTHROID [Concomitant]
     Active Substance: LEVOTHYROXINE SODIUM
     Indication: Product used for unknown indication
  19. nitroglycerin (NITROSTAT) [Concomitant]
     Indication: Chest pain
  20. promethazine-DM (PHENERGAN-DM) [Concomitant]
     Indication: Product used for unknown indication
  21. CIALIS [Concomitant]
     Active Substance: TADALAFIL
     Indication: Erectile dysfunction

REACTIONS (30)
  - Pneumonia [Recovered/Resolved]
  - Influenza [Recovered/Resolved]
  - Idiopathic pulmonary fibrosis [Unknown]
  - Fatigue [Not Recovered/Not Resolved]
  - Asthenia [Not Recovered/Not Resolved]
  - Exercise tolerance decreased [Not Recovered/Not Resolved]
  - Pain in extremity [Not Recovered/Not Resolved]
  - Diarrhoea [Recovering/Resolving]
  - COVID-19 [Recovered/Resolved]
  - Nausea [Recovering/Resolving]
  - Malaise [Recovering/Resolving]
  - Diarrhoea [Recovered/Resolved]
  - Dizziness [Recovered/Resolved]
  - Vomiting [Recovered/Resolved]
  - Diarrhoea [Recovered/Resolved]
  - Nausea [Recovered/Resolved]
  - Diarrhoea [Not Recovered/Not Resolved]
  - Asthenia [Not Recovered/Not Resolved]
  - Diarrhoea [Not Recovered/Not Resolved]
  - Diarrhoea [Unknown]
  - Cough [Unknown]
  - Dyspepsia [Unknown]
  - Abdominal discomfort [Unknown]
  - Nausea [Recovered/Resolved with Sequelae]
  - Blood bilirubin increased [Unknown]
  - Pruritus [Unknown]
  - Haemorrhoids [Not Recovered/Not Resolved]
  - Dehydration [Unknown]
  - Blood potassium decreased [Unknown]
  - Appetite disorder [Unknown]

NARRATIVE: CASE EVENT DATE: 20230801
